FAERS Safety Report 5079495-9 (Version None)
Quarter: 2006Q3

REPORT INFORMATION
  Report Type: 
  Country: None (occurrence: None)
  Receive Date: 20060814
  Receipt Date: 20050725
  Transmission Date: 20061208
  Serious: No
  Sender: FDA-Public Use
  Company Number: US-BRISTOL-MYERS SQUIBB COMPANY-13050026

PATIENT
  Sex: Female

DRUGS (4)
  1. GLUCOVANCE [Suspect]
     Indication: DIABETES MELLITUS NON-INSULIN-DEPENDENT
     Dosage: 2.5/5MG, 2/DAY, ST. 1-2 YEARS AGO; INC. TO 5/500MG, 2/DAY APPROX. 1 MONTH PRIOR TO REPORT
  2. AVAPRO [Concomitant]
  3. CRESTOR [Concomitant]
  4. FUROSEMIDE [Concomitant]

REACTIONS (1)
  - DIARRHOEA [None]
